FAERS Safety Report 7793703-2 (Version None)
Quarter: 2011Q4

REPORT INFORMATION
  Report Type: 
  Country: None (occurrence: None)
  Receive Date: 20111003
  Receipt Date: 20110922
  Transmission Date: 20120403
  Serious: Yes (Hospitalization)
  Sender: FDA-Public Use
  Company Number: US-SANOFI-AVENTIS-2011SA063828

PATIENT
  Sex: Female

DRUGS (2)
  1. METFORMIN HCL [Suspect]
     Route: 065
  2. LANTUS [Suspect]
     Route: 058

REACTIONS (2)
  - HYPERGLYCAEMIA [None]
  - CHRONIC OBSTRUCTIVE PULMONARY DISEASE [None]
